FAERS Safety Report 19929207 (Version 1)
Quarter: 2021Q4

REPORT INFORMATION
  Report Type: Spontaneous
  Country: CN (occurrence: CN)
  Receive Date: 20211007
  Receipt Date: 20211007
  Transmission Date: 20220303
  Serious: Yes (Life-Threatening, Hospitalization)
  Sender: FDA-Public Use
  Company Number: CN-BLUEPRINT MEDICINES CORPORATION-SO-CN-2021-001759

PATIENT
  Age: 69 Year
  Sex: Male

DRUGS (1)
  1. GAVRETO [Suspect]
     Active Substance: PRALSETINIB
     Indication: Product used for unknown indication
     Route: 048
     Dates: start: 20210723, end: 20210920

REACTIONS (2)
  - Pneumonitis [Not Recovered/Not Resolved]
  - Hydrothorax [Not Recovered/Not Resolved]

NARRATIVE: CASE EVENT DATE: 20210920
